FAERS Safety Report 13952333 (Version 1)
Quarter: 2017Q3

REPORT INFORMATION
  Report Type: Spontaneous
  Country: US (occurrence: US)
  Receive Date: 20170911
  Receipt Date: 20170911
  Transmission Date: 20171128
  Serious: No
  Sender: FDA-Public Use
  Company Number: US-TEVA-703278USA

PATIENT
  Age: 69 Year
  Sex: Female
  Weight: 97.61 kg

DRUGS (8)
  1. FENTANYL. [Suspect]
     Active Substance: FENTANYL
     Route: 062
     Dates: start: 20160911
  2. AMLODIPINE [Concomitant]
     Active Substance: AMLODIPINE BESYLATE
     Dosage: 5/20 MG
  3. HYDROCODONE [Concomitant]
     Active Substance: HYDROCODONE
  4. POTASSIUM CHLORIDE. [Concomitant]
     Active Substance: POTASSIUM CHLORIDE
  5. FENTANYL. [Suspect]
     Active Substance: FENTANYL
     Indication: ARTHRITIS
     Route: 062
     Dates: start: 20160908, end: 20160911
  6. SYNTHROID [Concomitant]
     Active Substance: LEVOTHYROXINE SODIUM
  7. FENTANYL. [Suspect]
     Active Substance: FENTANYL
     Route: 062
     Dates: start: 20160915
  8. VENLAFAXINE [Concomitant]
     Active Substance: VENLAFAXINE HYDROCHLORIDE

REACTIONS (10)
  - Product adhesion issue [Unknown]
  - Tearfulness [Recovered/Resolved]
  - Drug ineffective [Unknown]
  - Insomnia [Recovered/Resolved]
  - Restless legs syndrome [Recovered/Resolved]
  - Dermal absorption impaired [Unknown]
  - Feeding disorder [Recovered/Resolved]
  - Drug withdrawal syndrome [Recovered/Resolved]
  - Feeling abnormal [Recovered/Resolved]
  - Depression [Recovered/Resolved]

NARRATIVE: CASE EVENT DATE: 2016
